FAERS Safety Report 16757774 (Version 2)
Quarter: 2019Q3

REPORT INFORMATION
  Report Type: Spontaneous
  Country: GB (occurrence: GB)
  Receive Date: 20190830
  Receipt Date: 20190911
  Transmission Date: 20191005
  Serious: Yes (Hospitalization)
  Sender: FDA-Public Use
  Company Number: GB-DRREDDYS-GER/UKI/19/0113684

PATIENT
  Age: 50 Year
  Sex: Female

DRUGS (4)
  1. HYDROCORTISONE. [Suspect]
     Active Substance: HYDROCORTISONE
     Indication: PRODUCT USED FOR UNKNOWN INDICATION
     Dosage: STRENGTH: 10 MG ONE TABLET TAKEN;
     Route: 048
     Dates: start: 20190801, end: 20190802
  2. FLUDROCORTISONE [Concomitant]
     Active Substance: FLUDROCORTISONE
     Indication: PRODUCT USED FOR UNKNOWN INDICATION
     Dosage: STRENGTH: 20 MG?ONE DAILY;
  3. LETROZOLE. [Suspect]
     Active Substance: LETROZOLE
     Indication: PRODUCT USED FOR UNKNOWN INDICATION
     Dosage: STRENGTH: 2.5 MG ONE DAILY;
  4. RIVAROXABAN [Concomitant]
     Active Substance: RIVAROXABAN
     Indication: PRODUCT USED FOR UNKNOWN INDICATION
     Dosage: STRENGTH: 20 MG ONE DAILY;

REACTIONS (4)
  - Syncope [Recovered/Resolved]
  - Malaise [Recovered/Resolved]
  - Product dispensing error [Unknown]
  - Wrong product administered [Unknown]

NARRATIVE: CASE EVENT DATE: 20190801
